FAERS Safety Report 8517072-5 (Version None)
Quarter: 2012Q3

REPORT INFORMATION
  Report Type: 
  Country: None (occurrence: None)
  Receive Date: 20120718
  Receipt Date: 20120713
  Transmission Date: 20120928
  Serious: Yes (Hospitalization)
  Sender: FDA-Public Use
  Company Number: BR-PFIZER INC-2012170402

PATIENT
  Age: 55 Year
  Sex: Female

DRUGS (2)
  1. ALPRAZOLAM [Suspect]
     Indication: STRESS
     Dosage: STRENGTH 1 MG, UNKNOWN DOSE 2 DAILY
     Route: 048
     Dates: start: 20070101, end: 20110101
  2. SERTRALINE [Concomitant]
     Dosage: UNK, DAILY
     Dates: start: 20070101

REACTIONS (2)
  - CHEST PAIN [None]
  - INFARCTION [None]
